FAERS Safety Report 18751411 (Version 1)
Quarter: 2021Q1

REPORT INFORMATION
  Report Type: Spontaneous
  Country: AR (occurrence: AR)
  Receive Date: 20210118
  Receipt Date: 20210118
  Transmission Date: 20210419
  Serious: Yes (Other)
  Sender: FDA-Public Use
  Company Number: AR-PFIZER INC-2021029923

PATIENT
  Age: 68 Year
  Sex: Female

DRUGS (2)
  1. IBRANCE [Suspect]
     Active Substance: PALBOCICLIB
     Indication: BREAST CANCER METASTATIC
     Dosage: 125 MG, CYCLIC (DAILY, SCHEME 3X1)
     Dates: start: 20190105
  2. LETROZOL [Concomitant]
     Active Substance: LETROZOLE

REACTIONS (4)
  - Deafness [Unknown]
  - Diabetes mellitus [Unknown]
  - Single functional kidney [Unknown]
  - Hypertension [Unknown]
